FAERS Safety Report 15708836 (Version 1)
Quarter: 2018Q4

REPORT INFORMATION
  Report Type: Spontaneous
  Country: US (occurrence: US)
  Receive Date: 20181211
  Receipt Date: 20181211
  Transmission Date: 20190205
  Serious: Yes (Death)
  Sender: FDA-Public Use
  Company Number: None

PATIENT
  Sex: Male

DRUGS (1)
  1. BOTOX [Suspect]
     Active Substance: ONABOTULINUMTOXINA
     Indication: FACIAL SPASM
     Dosage: ?          OTHER FREQUENCY:Q 91 DAYS;OTHER ROUTE:IM INTO FACIAL AREA?
     Route: 030
     Dates: start: 20170309

REACTIONS (1)
  - Death [None]
